FAERS Safety Report 15626267 (Version 1)
Quarter: 2018Q4

REPORT INFORMATION
  Report Type: Spontaneous
  Country: US (occurrence: US)
  Receive Date: 20181116
  Receipt Date: 20181116
  Transmission Date: 20190205
  Serious: Yes (Other)
  Sender: FDA-Public Use
  Company Number: US-SA-2018SA136636

PATIENT
  Age: 49 Year
  Sex: Female
  Weight: 86.18 kg

DRUGS (12)
  1. TAXOTERE [Suspect]
     Active Substance: DOCETAXEL
     Dosage: 137 MG, Q3W
     Route: 042
     Dates: start: 20150304, end: 20150304
  2. ALOXI [Concomitant]
     Active Substance: PALONOSETRON HYDROCHLORIDE
  3. TAXOTERE [Suspect]
     Active Substance: DOCETAXEL
     Indication: BREAST CANCER
     Dosage: 137 MG, Q3W
     Route: 042
     Dates: start: 20150107, end: 20150107
  4. CYTOXAN [Concomitant]
     Active Substance: CYCLOPHOSPHAMIDE
  5. DILTIAZEM. [Concomitant]
     Active Substance: DILTIAZEM
  6. PARAPLATIN [Concomitant]
     Active Substance: CARBOPLATIN
  7. TYLENOL [Concomitant]
     Active Substance: ACETAMINOPHEN
  8. PEGFILGRASTIM [Concomitant]
     Active Substance: PEGFILGRASTIM
  9. NEXIUM [ESOMEPRAZOLE MAGNESIUM] [Concomitant]
  10. HERCEPTIN [Concomitant]
     Active Substance: TRASTUZUMAB
  11. VALTREX [Concomitant]
     Active Substance: VALACYCLOVIR HYDROCHLORIDE
  12. DECADRON (DEXAMETHASONE SODIUM PHOSPHATE) [Concomitant]
     Active Substance: DEXAMETHASONE SODIUM PHOSPHATE

REACTIONS (1)
  - Alopecia [Recovering/Resolving]

NARRATIVE: CASE EVENT DATE: 20151001
